FAERS Safety Report 5170247-8 (Version None)
Quarter: 2006Q4

REPORT INFORMATION
  Report Type: 
  Country: None (occurrence: None)
  Receive Date: 20061204
  Receipt Date: 20061127
  Transmission Date: 20070319
  Serious: Yes (Other)
  Sender: FDA-Public Use
  Company Number: GXKR2006IT07680

PATIENT
  Age: 44 Year
  Sex: Female

DRUGS (10)
  1. PAMIDRONATE [Suspect]
     Indication: MULTIPLE MYELOMA
     Dosage: 90 MG, QMO, INTRAVENOUS
     Route: 042
  2. VINCRISTINE [Suspect]
     Indication: MULTIPLE MYELOMA
     Dosage: INTRAVENOUS
     Route: 042
  3. DEXAMETHASONE [Suspect]
     Dosage: INTRAVENOUS
     Route: 042
  4. ZOLEDRONATE [Suspect]
     Indication: MULTIPLE MYELOMA
     Dosage: 4 MG, QMO, INTRAVENOUS
     Route: 042
  5. MELPHALAN [Suspect]
     Indication: MULTIPLE MYELOMA
     Dosage: 200 MG/M2, INTRAVENOUS
     Route: 042
  6. ADRIAMYCIN PFS [Suspect]
     Dosage: INTRAVENOUS
     Route: 042
  7. HEMATOPOETIC PROGENITOR CELLS HUMAN [Concomitant]
  8. THALIDOMIDE                                            (THALIDOMIDE) [Concomitant]
  9. NAPROXEN [Concomitant]
  10. KETOROLAC TROMETHAMINE [Concomitant]

REACTIONS (5)
  - BONE DISORDER [None]
  - HYPOAESTHESIA [None]
  - IMPAIRED HEALING [None]
  - OSTEONECROSIS [None]
  - PAIN [None]
